FAERS Safety Report 18812288 (Version 6)
Quarter: 2022Q1

REPORT INFORMATION
  Report Type: Spontaneous
  Country: CZ (occurrence: CZ)
  Receive Date: 20210129
  Receipt Date: 20220317
  Transmission Date: 20220423
  Serious: Yes (Other)
  Sender: FDA-Public Use
  Company Number: CZ-002147023-NVSC2021CZ002474

PATIENT
  Age: 3 Decade
  Sex: Female

DRUGS (38)
  1. GABAPENTIN [Suspect]
     Active Substance: GABAPENTIN
     Indication: Prophylaxis
     Dosage: UNK
     Route: 065
     Dates: start: 201401, end: 201403
  2. GABAPENTIN [Suspect]
     Active Substance: GABAPENTIN
     Indication: Migraine
  3. METOPROLOL [Suspect]
     Active Substance: METOPROLOL
     Indication: Prophylaxis
     Dosage: 50 MILLIGRAM, ONCE A DAY
     Route: 048
     Dates: start: 201403, end: 201411
  4. PREGABALIN [Suspect]
     Active Substance: PREGABALIN
     Indication: Migraine prophylaxis
     Dosage: 150 MILLIGRAM, TWO TIMES A DAY (300 MILLIGRAM, ONCE A DAY)
     Route: 065
     Dates: start: 201510
  5. PREGABALIN [Suspect]
     Active Substance: PREGABALIN
     Indication: Mixed anxiety and depressive disorder
     Dosage: 150 MILLIGRAM, TWO TIMES A DAY (300 MILLIGRAM, ONCE A DAY)
     Route: 048
     Dates: start: 201802, end: 201804
  6. PREGABALIN [Suspect]
     Active Substance: PREGABALIN
     Indication: Migraine
  7. SUMATRIPTAN [Suspect]
     Active Substance: SUMATRIPTAN
     Indication: Migraine
     Dosage: 50 MILLIGRAM, AS NEEDED
     Route: 065
  8. AMITRIPTYLINE [Suspect]
     Active Substance: AMITRIPTYLINE
     Indication: Prophylaxis
     Dosage: 25 MILLIGRAM, ONCE A DAY
     Route: 065
     Dates: start: 2016
  9. FLUNARIZINE [Suspect]
     Active Substance: FLUNARIZINE
     Indication: Prophylaxis
     Dosage: 5 MILLIGRAM, ONCE A DAY
     Route: 065
     Dates: start: 201201, end: 201205
  10. TOPIRAMATE [Suspect]
     Active Substance: TOPIRAMATE
     Indication: Migraine prophylaxis
     Dosage: 75 MILLIGRAM (50MG MORNING, 25 MG EVENING)
     Route: 048
     Dates: start: 201411, end: 201504
  11. TOPIRAMATE [Suspect]
     Active Substance: TOPIRAMATE
     Indication: Prophylaxis
  12. VENLAFAXINE [Suspect]
     Active Substance: VENLAFAXINE HYDROCHLORIDE
     Indication: Prophylaxis
     Dosage: 150 MILLIGRAM, 5/2015, RESTARTED AGAIN 2/2019
     Route: 048
     Dates: start: 201504, end: 201505
  13. VENLAFAXINE [Suspect]
     Active Substance: VENLAFAXINE HYDROCHLORIDE
     Indication: Migraine prophylaxis
     Dosage: 150 MILLIGRAM
     Route: 048
     Dates: start: 201902
  14. ZONISAMIDE [Suspect]
     Active Substance: ZONISAMIDE
     Indication: Migraine prophylaxis
     Dosage: 100 MILLIGRAM, ONCE A DAY
     Route: 048
     Dates: start: 201802, end: 201804
  15. ACECLOFENAC [Concomitant]
     Active Substance: ACECLOFENAC
     Indication: Analgesic therapy
     Dosage: 100 MILLIGRAM
     Route: 065
  16. CODEINE [Concomitant]
     Active Substance: CODEINE
     Indication: Product used for unknown indication
     Dosage: UNK
     Route: 065
  17. ELETRIPTAN [Concomitant]
     Active Substance: ELETRIPTAN
     Indication: Migraine
     Dosage: UNK
     Route: 065
  18. FLUOXETINE [Concomitant]
     Active Substance: FLUOXETINE HYDROCHLORIDE
     Indication: Depression
     Dosage: UNK
     Route: 065
     Dates: start: 201510
  19. FREMANEZUMAB [Concomitant]
     Active Substance: FREMANEZUMAB
     Indication: Migraine
     Dosage: UNK
     Route: 065
  20. FROVATRIPTAN [Concomitant]
     Active Substance: FROVATRIPTAN
     Indication: Migraine
     Dosage: UNK
     Route: 065
  21. GLUTEN [Concomitant]
     Active Substance: WHEAT GLUTEN
     Indication: Product used for unknown indication
     Dosage: UNK
     Route: 065
  22. IBUPROFEN [Concomitant]
     Active Substance: IBUPROFEN
     Indication: Analgesic therapy
     Dosage: 600 MILLIGRAM
     Route: 065
  23. INDOMETHACIN [Concomitant]
     Active Substance: INDOMETHACIN
     Indication: Analgesic therapy
     Dosage: 100 MILLIGRAM
     Route: 065
  24. ISOPRINOSINE [Concomitant]
     Active Substance: INOSINE PRANOBEX
     Indication: Infectious mononucleosis
     Dosage: UNK
     Route: 065
     Dates: start: 201505
  25. KETOPROFEN [Concomitant]
     Active Substance: KETOPROFEN
     Indication: Analgesic therapy
     Dosage: 100 MILLIGRAM
     Route: 065
  26. LACTOSE [Concomitant]
     Active Substance: LACTOSE
     Indication: Product used for unknown indication
     Dosage: UNK
     Route: 065
  27. METAMIZOLE [Concomitant]
     Active Substance: METAMIZOLE
     Indication: Analgesic therapy
     Dosage: UNK
     Route: 065
  28. NIMESULIDE [Concomitant]
     Active Substance: NIMESULIDE
     Indication: Analgesic therapy
     Dosage: 100 MILLIGRAM
     Route: 065
  29. ACETAMINOPHEN\CODEINE PHOSPHATE [Concomitant]
     Active Substance: ACETAMINOPHEN\CODEINE PHOSPHATE
     Indication: Analgesic therapy
     Dosage: UNK
     Route: 065
  30. ACETAMINOPHEN [Concomitant]
     Active Substance: ACETAMINOPHEN
     Indication: Analgesic therapy
     Dosage: 1000 MILLIGRAM
     Route: 065
  31. PIZOTYLINE [Concomitant]
     Active Substance: PIZOTYLINE
     Indication: Product used for unknown indication
     Dosage: UNK, ONCE A DAY
     Route: 065
     Dates: start: 201303
  32. PAROXETINE [Concomitant]
     Active Substance: PAROXETINE
     Indication: Depression
     Dosage: UNK
     Route: 065
     Dates: start: 201510
  33. PREGABALIN [Concomitant]
     Active Substance: PREGABALIN
     Indication: Depression
     Dosage: 150 MILLIGRAM, TWO TIMES A DAY
     Route: 065
  34. PREGABALIN [Concomitant]
     Active Substance: PREGABALIN
     Indication: Mixed anxiety and depressive disorder
     Dosage: UNK
     Route: 065
  35. SERTRALINE [Concomitant]
     Active Substance: SERTRALINE HYDROCHLORIDE
     Indication: Depression
     Dosage: UNK
     Route: 065
     Dates: start: 201510
  36. TRAZODONE [Concomitant]
     Active Substance: TRAZODONE HYDROCHLORIDE
     Indication: Psychiatric symptom
     Dosage: UNK
     Route: 065
  37. VALPROATE [Concomitant]
     Active Substance: VALPROIC ACID
     Indication: Product used for unknown indication
     Dosage: UNK
     Route: 065
  38. ZONISAMIDE [Concomitant]
     Active Substance: ZONISAMIDE
     Indication: Migraine
     Dosage: 100 MILLIGRAM, ONCE A DAY
     Route: 065

REACTIONS (12)
  - Dermatitis bullous [Unknown]
  - Paraesthesia [Recovered/Resolved]
  - Feeling abnormal [Unknown]
  - Eye pruritus [Unknown]
  - Fatigue [Recovered/Resolved]
  - Urticaria chronic [Unknown]
  - Pain [Unknown]
  - Dyspnoea [Unknown]
  - Urinary tract infection [Unknown]
  - Stupor [Recovered/Resolved]
  - Drug ineffective [Recovered/Resolved]
  - Off label use [Recovered/Resolved]

NARRATIVE: CASE EVENT DATE: 20140101
